FAERS Safety Report 6896598-4 (Version None)
Quarter: 2010Q3

REPORT INFORMATION
  Report Type: 
  Country: None (occurrence: None)
  Receive Date: 20100802
  Receipt Date: 20070110
  Transmission Date: 20110219
  Serious: No
  Sender: FDA-Public Use
  Company Number: US-PFIZER INC-2007004154

PATIENT
  Sex: Female
  Weight: 63.5 kg

DRUGS (3)
  1. LYRICA [Suspect]
     Indication: ELECTROENCEPHALOGRAM ABNORMAL
     Dates: start: 20070108
  2. ALL OTHER THERAPEUTIC PRODUCTS [Concomitant]
  3. CARDIOVASCULAR SYSTEM DRUGS [Concomitant]

REACTIONS (5)
  - DISTURBANCE IN ATTENTION [None]
  - DIZZINESS [None]
  - DRY MOUTH [None]
  - FATIGUE [None]
  - SOMNOLENCE [None]
